FAERS Safety Report 9937139 (Version 6)
Quarter: 2020Q2

REPORT INFORMATION
  Report Type: Report from Study
  Country: CA (occurrence: CA)
  Receive Date: 20140301
  Receipt Date: 20200503
  Transmission Date: 20200714
  Serious: Yes (Hospitalization, Other)
  Sender: FDA-Public Use
  Company Number: CA-ROCHE-1260281

PATIENT
  Age: 55 Year
  Sex: Female
  Weight: 81.6 kg

DRUGS (21)
  1. PREDNISONE. [Suspect]
     Active Substance: PREDNISONE
     Route: 048
  2. PLAQUENIL [Concomitant]
     Active Substance: HYDROXYCHLOROQUINE SULFATE
     Route: 048
  3. METHADONE [Concomitant]
     Active Substance: METHADONE HYDROCHLORIDE
     Indication: NEURALGIA
  4. PREGABALIN. [Suspect]
     Active Substance: PREGABALIN
     Indication: PAIN
     Route: 065
  5. OXYCONTIN [Concomitant]
     Active Substance: OXYCODONE HYDROCHLORIDE
  6. RITUXAN [Suspect]
     Active Substance: RITUXIMAB
     Indication: SYSTEMIC LUPUS ERYTHEMATOSUS
     Route: 042
     Dates: start: 20130207, end: 20161103
  7. DIPHENHYDRAMINE HCL [Concomitant]
     Active Substance: DIPHENHYDRAMINE HYDROCHLORIDE
     Indication: PREMEDICATION
     Route: 048
     Dates: start: 20130207
  8. METHYLPREDNISOLONE. [Concomitant]
     Active Substance: METHYLPREDNISOLONE
     Indication: PREMEDICATION
     Route: 042
     Dates: start: 20130207
  9. RITUXAN [Suspect]
     Active Substance: RITUXIMAB
     Route: 042
     Dates: start: 20190512
  10. FENTANYL. [Concomitant]
     Active Substance: FENTANYL
     Route: 065
  11. PREDNISONE. [Suspect]
     Active Substance: PREDNISONE
     Indication: PRODUCT USED FOR UNKNOWN INDICATION
     Dosage: MOST RECENT DOSE: 20/FEB/2013
     Route: 065
  12. ACETAMINOPHEN. [Concomitant]
     Active Substance: ACETAMINOPHEN
     Indication: PREMEDICATION
     Route: 048
     Dates: start: 20130207
  13. AMITRIPTYLINE [Concomitant]
     Active Substance: AMITRIPTYLINE
     Route: 065
  14. METOPROLOL. [Concomitant]
     Active Substance: METOPROLOL
     Indication: BLOOD PRESSURE MEASUREMENT
  15. NAPROXEN. [Concomitant]
     Active Substance: NAPROXEN
  16. RITUXAN [Suspect]
     Active Substance: RITUXIMAB
     Indication: PNEUMONITIS
     Route: 042
     Dates: start: 20141201
  17. RITUXAN [Suspect]
     Active Substance: RITUXIMAB
     Route: 042
     Dates: start: 20191029
  18. GRAVOL [Suspect]
     Active Substance: DIMENHYDRINATE
     Indication: PRODUCT USED FOR UNKNOWN INDICATION
     Route: 065
  19. ONDANSETRON [Suspect]
     Active Substance: ONDANSETRON
     Indication: PRODUCT USED FOR UNKNOWN INDICATION
     Route: 065
     Dates: end: 2013
  20. WARFARIN [Suspect]
     Active Substance: WARFARIN
     Indication: PRODUCT USED FOR UNKNOWN INDICATION
     Route: 065
  21. ESOMEPRAZOLE. [Concomitant]
     Active Substance: ESOMEPRAZOLE MAGNESIUM

REACTIONS (16)
  - Paralysis [Recovering/Resolving]
  - Total lung capacity decreased [Not Recovered/Not Resolved]
  - Weight increased [Recovering/Resolving]
  - Pain [Not Recovered/Not Resolved]
  - White blood cell count decreased [Unknown]
  - Morning sickness [Not Recovered/Not Resolved]
  - Malaise [Unknown]
  - Myelitis transverse [Unknown]
  - Cerebrovascular accident [Unknown]
  - Heart rate increased [Unknown]
  - Antiphospholipid syndrome [Unknown]
  - Intentional product use issue [Unknown]
  - Off label use [Unknown]
  - Haematuria [Unknown]
  - Hypotension [Unknown]
  - Ulcer [Unknown]

NARRATIVE: CASE EVENT DATE: 2019
